FAERS Safety Report 4498869-8 (Version None)
Quarter: 2004Q4

REPORT INFORMATION
  Report Type: 
  Country: None (occurrence: None)
  Receive Date: 20041108
  Receipt Date: 20041019
  Transmission Date: 20050328
  Serious: Yes (Hospitalization)
  Sender: FDA-Public Use
  Company Number: 6011425

PATIENT
  Age: 83 Year
  Sex: Male

DRUGS (5)
  1. DICLOFENAC SODIUM [Suspect]
     Indication: MYALGIA
     Dosage: 200,000 MG (100 MG, 2 IN 1 D)
     Dates: start: 20040910, end: 20040921
  2. ZOPICLONE MERCK 7.5 MG (7,5 MG, TABLETS) (ZOPICLONE) [Suspect]
     Indication: PAIN
     Dosage: 7,500 MG (7,M5 MG, 1 IN 1 D)
     Dates: start: 20040930
  3. SIMVASTATIN (10 MG, TABLETS)(SIMVASTATIN) [Suspect]
     Indication: HYPERCHOLESTEROLAEMIA
     Dosage: 10,000 MG (10 MG, 1 IN 1D)
     Dates: end: 20041006
  4. PARACETAMOL + CODEINE (CODEINE PHOSPHATE, PARACETAMOL) [Concomitant]
  5. CAPTOPRIL [Concomitant]

REACTIONS (5)
  - CONDITION AGGRAVATED [None]
  - DRUG INTERACTION [None]
  - MYALGIA [None]
  - MYOPATHY [None]
  - PAIN [None]
